FAERS Safety Report 23507996 (Version 1)
Quarter: 2024Q1

REPORT INFORMATION
  Report Type: Spontaneous
  Country: CN (occurrence: CN)
  Receive Date: 20240209
  Receipt Date: 20240209
  Transmission Date: 20240410
  Serious: Yes (Hospitalization)
  Sender: FDA-Public Use
  Company Number: CN-Merck Healthcare KGaA-2024006404

PATIENT
  Age: 83 Year
  Sex: Male
  Weight: 63 kg

DRUGS (3)
  1. ERBITUX [Suspect]
     Active Substance: CETUXIMAB
     Indication: Gingival cancer
     Dosage: 800 MG, UNKNOWN
     Route: 041
     Dates: start: 20240112, end: 20240112
  2. PACLITAXEL [Suspect]
     Active Substance: PACLITAXEL
     Indication: Gingival cancer
     Dosage: 300 MG, DAILY
     Route: 041
     Dates: start: 20240115, end: 20240115
  3. SERPLULIMAB [Suspect]
     Active Substance: SERPLULIMAB
     Indication: Gingival cancer
     Dosage: 300 MG, DAILY
     Route: 041
     Dates: start: 20240112, end: 20240112

REACTIONS (2)
  - White blood cell count decreased [Recovering/Resolving]
  - Neutrophil count decreased [Recovering/Resolving]

NARRATIVE: CASE EVENT DATE: 20240123
